FAERS Safety Report 9293229 (Version 1)
Quarter: 2013Q2

REPORT INFORMATION
  Report Type: Spontaneous
  Country: GB (occurrence: GB)
  Receive Date: 20130516
  Receipt Date: 20130516
  Transmission Date: 20140414
  Serious: Yes (Other)
  Sender: FDA-Public Use
  Company Number: GB-MYLANLABS-2013S1009949

PATIENT
  Age: 51 Year
  Sex: Female
  Weight: 71 kg

DRUGS (2)
  1. AMLODIPINE [Suspect]
     Indication: PRODUCT USED FOR UNKNOWN INDICATION
     Dates: start: 20121218
  2. RAMIPRIL [Concomitant]
     Indication: PRODUCT USED FOR UNKNOWN INDICATION
     Dates: start: 20130425

REACTIONS (2)
  - Gingival hyperplasia [Recovering/Resolving]
  - Loose tooth [Recovering/Resolving]
